FAERS Safety Report 5010848-0 (Version None)
Quarter: 2006Q2

REPORT INFORMATION
  Report Type: 
  Country: None (occurrence: None)
  Receive Date: 20060525
  Receipt Date: 20060119
  Transmission Date: 20061013
  Serious: Yes (Hospitalization)
  Sender: FDA-Public Use
  Company Number: FR-GLAXOSMITHKLINE-B0407582A

PATIENT
  Age: 50 Year
  Sex: Male
  Weight: 73 kg

DRUGS (10)
  1. EPIVIR [Suspect]
     Indication: HIV INFECTION
     Dosage: 150MG TWICE PER DAY
     Route: 048
     Dates: start: 19991015, end: 20051210
  2. ZERIT [Suspect]
     Indication: HIV INFECTION
     Dosage: 40MG TWICE PER DAY
     Route: 048
     Dates: start: 19991015, end: 20051210
  3. KALETRA [Suspect]
     Indication: HIV INFECTION
     Dosage: 3CAP TWICE PER DAY
     Route: 048
     Dates: start: 20000522, end: 20051210
  4. VIRACEPT [Suspect]
     Indication: HIV INFECTION
     Route: 048
     Dates: start: 19991015, end: 20000522
  5. DEPAKENE [Concomitant]
     Dosage: 2.5TAB TWICE PER DAY
     Route: 048
  6. NEURONTIN [Concomitant]
     Dosage: 800MG THREE TIMES PER DAY
     Route: 048
  7. NEXIUM [Concomitant]
     Dosage: 20MG PER DAY
     Route: 048
  8. LEXOMIL [Concomitant]
     Dosage: 1.5MG THREE TIMES PER DAY
     Route: 048
  9. LOXEN [Concomitant]
     Dosage: 40MG TWICE PER DAY
     Route: 048
  10. URBANYL [Concomitant]
     Dosage: 5MG THREE TIMES PER DAY
     Route: 048

REACTIONS (3)
  - PAIN [None]
  - PANCREATITIS HAEMORRHAGIC [None]
  - PYREXIA [None]
